FAERS Safety Report 10253490 (Version 1)
Quarter: 2014Q2

REPORT INFORMATION
  Report Type: Report from Study
  Country: ZA (occurrence: ZA)
  Receive Date: 20140623
  Receipt Date: 20140623
  Transmission Date: 20141212
  Serious: Yes (Death)
  Sender: FDA-Public Use
  Company Number: PHHY2014ZA076689

PATIENT
  Sex: Male

DRUGS (2)
  1. GLIVEC [Suspect]
     Indication: HYPEREOSINOPHILIC SYNDROME
     Dosage: 400 MG, UNK
  2. GLIVEC [Suspect]
     Indication: CHRONIC EOSINOPHILIC LEUKAEMIA

REACTIONS (2)
  - Cardiac failure [Fatal]
  - Pulmonary embolism [Fatal]
